FAERS Safety Report 24973248 (Version 1)
Quarter: 2025Q1

REPORT INFORMATION
  Report Type: Spontaneous
  Country: US (occurrence: US)
  Receive Date: 20250216
  Receipt Date: 20250216
  Transmission Date: 20250408
  Serious: No
  Sender: ROCHE
  Company Number: US-ROCHE-10000206807

PATIENT
  Age: 38 Year
  Sex: Female

DRUGS (4)
  1. CELLCEPT [Suspect]
     Active Substance: MYCOPHENOLATE MOFETIL
     Indication: Immunosuppression
     Route: 048
     Dates: start: 202203
  2. PREDNISONE [Concomitant]
     Active Substance: PREDNISONE
     Dates: end: 2023
  3. BENLYSTA [Concomitant]
     Active Substance: BELIMUMAB
     Dates: start: 202301
  4. HYDROXYCHLOROQUINE [Concomitant]
     Active Substance: HYDROXYCHLOROQUINE

REACTIONS (2)
  - Off label use [Unknown]
  - No adverse event [Unknown]
